FAERS Safety Report 18597067 (Version 1)
Quarter: 2020Q4

REPORT INFORMATION
  Report Type: Spontaneous
  Country: CN (occurrence: CN)
  Receive Date: 20201209
  Receipt Date: 20201209
  Transmission Date: 20210114
  Serious: Yes (Other)
  Sender: FDA-Public Use
  Company Number: CN-ASTRAZENECA-2020SF58889

PATIENT
  Age: 676 Month
  Sex: Female

DRUGS (1)
  1. IRESSA [Suspect]
     Active Substance: GEFITINIB
     Indication: NON-SMALL CELL LUNG CANCER
     Dosage: ONE TABLET A DAY
     Route: 048
     Dates: start: 201804, end: 202007

REACTIONS (5)
  - Malignant neoplasm progression [Unknown]
  - Metastases to chest wall [Unknown]
  - Metastases to stomach [Unknown]
  - Drug resistance [Unknown]
  - Metastases to oesophagus [Unknown]

NARRATIVE: CASE EVENT DATE: 202001
